FAERS Safety Report 9740045 (Version 2)
Quarter: 2013Q4

REPORT INFORMATION
  Report Type: Report from Study
  Country: BR (occurrence: BR)
  Receive Date: 20131209
  Receipt Date: 20131209
  Transmission Date: 20140711
  Serious: Yes (Death, Hospitalization)
  Sender: FDA-Public Use
  Company Number: BR-ABBVIE-11P-020-0873814-00

PATIENT
  Age: 55 Year
  Sex: Female
  Weight: 62 kg

DRUGS (7)
  1. HUMIRA [Suspect]
     Indication: RHEUMATOID ARTHRITIS
  2. METFORMIN [Concomitant]
     Indication: PRODUCT USED FOR UNKNOWN INDICATION
  3. AZATHIOPRINE [Concomitant]
     Indication: PRODUCT USED FOR UNKNOWN INDICATION
  4. UNSPECIFIED DRUG [Concomitant]
     Indication: DIABETES MELLITUS
  5. UNSPECIFIED DRUG [Concomitant]
     Indication: BLOOD CHOLESTEROL INCREASED
  6. UNSPECIFIED DRUG [Concomitant]
     Indication: RHEUMATIC DISORDER
  7. UNSPECIFIED DRUG [Concomitant]
     Indication: CARDIAC PACEMAKER INSERTION

REACTIONS (3)
  - Cardio-respiratory arrest [Fatal]
  - Hypophagia [Unknown]
  - Arrhythmia [Unknown]
